FAERS Safety Report 8974084 (Version 1)
Quarter: 2012Q4

REPORT INFORMATION
  Report Type: Spontaneous
  Country: US (occurrence: None)
  Receive Date: 20121217
  Receipt Date: 20121217
  Transmission Date: 20130627
  Serious: Yes (Life-Threatening, Hospitalization, Disabling, Other)
  Sender: FDA-Public Use
  Company Number: None

PATIENT
  Age: 37 Year
  Sex: Female
  Weight: 54.43 kg

DRUGS (2)
  1. HUMIRA, 40 MG/0.08 ML, ABBOTT [Suspect]
     Indication: ANKYLOSING SPONDYLITIS
     Dates: start: 20110201, end: 20121101
  2. HUMIRA, 40 MG/0.08 ML, ABBOTT [Suspect]
     Indication: ULCERATIVE COLITIS
     Dates: start: 20110201, end: 20121101

REACTIONS (1)
  - Colon cancer metastatic [None]
